FAERS Safety Report 25842463 (Version 1)
Quarter: 2025Q3

REPORT INFORMATION
  Report Type: Spontaneous
  Country: JP (occurrence: JP)
  Receive Date: 20250924
  Receipt Date: 20250924
  Transmission Date: 20251021
  Serious: Yes (Other)
  Sender: AMGEN
  Company Number: JP-AMGEN-JPNSP2025187659

PATIENT
  Sex: Male

DRUGS (2)
  1. IMDELLTRA [Suspect]
     Active Substance: TARLATAMAB-DLLE
     Indication: Product used for unknown indication
     Route: 040
  2. IMDELLTRA [Suspect]
     Active Substance: TARLATAMAB-DLLE
     Route: 040

REACTIONS (5)
  - Oesophageal obstruction [Unknown]
  - Disease progression [Unknown]
  - Lymphadenopathy [Unknown]
  - Cytokine release syndrome [Unknown]
  - Decreased appetite [Unknown]
